FAERS Safety Report 7586453-9 (Version None)
Quarter: 2011Q3

REPORT INFORMATION
  Report Type: 
  Country: None (occurrence: None)
  Receive Date: 20110701
  Receipt Date: 20110628
  Transmission Date: 20111222
  Serious: Yes (Other)
  Sender: FDA-Public Use
  Company Number: D0071859A

PATIENT
  Sex: Male

DRUGS (1)
  1. TROBALT [Suspect]
     Route: 048

REACTIONS (5)
  - PSYCHOTIC DISORDER [None]
  - CONFUSIONAL STATE [None]
  - MANIA [None]
  - INCORRECT DRUG ADMINISTRATION RATE [None]
  - AGGRESSION [None]
